FAERS Safety Report 25517717 (Version 2)
Quarter: 2025Q3

REPORT INFORMATION
  Report Type: Spontaneous
  Country: EU (occurrence: EU)
  Receive Date: 20250704
  Receipt Date: 20250810
  Transmission Date: 20251020
  Serious: Yes (Hospitalization, Other)
  Sender: ALEXION PHARMACEUTICALS
  Company Number: 2025007764-000

PATIENT
  Age: 54 Year
  Sex: Male

DRUGS (16)
  1. TICAGRELOR [Suspect]
     Active Substance: TICAGRELOR
     Route: 065
  2. QUETIAPINE [Suspect]
     Active Substance: QUETIAPINE
  3. MIRTAZAPINE [Suspect]
     Active Substance: MIRTAZAPINE
     Route: 065
  4. CLORAZEPATE DIPOTASSIUM [Suspect]
     Active Substance: CLORAZEPATE DIPOTASSIUM
     Route: 065
  5. VALSARTAN [Concomitant]
     Active Substance: VALSARTAN
  6. OMEPRAZOLE [Concomitant]
     Active Substance: OMEPRAZOLE
  7. LEVETIRACETAM [Concomitant]
     Active Substance: LEVETIRACETAM
  8. BIPERIDEN [Concomitant]
     Active Substance: BIPERIDEN
  9. NITROGLYCERIN [Concomitant]
     Active Substance: NITROGLYCERIN
  10. BISOPROLOL [Concomitant]
     Active Substance: BISOPROLOL
  11. CLORAZEPATE DIPOTASSIUM [Concomitant]
     Active Substance: CLORAZEPATE DIPOTASSIUM
  12. FUROSEMIDE [Concomitant]
     Active Substance: FUROSEMIDE
  13. EMPAGLIFLOZIN [Concomitant]
     Active Substance: EMPAGLIFLOZIN
  14. ATORVASTATIN [Concomitant]
     Active Substance: ATORVASTATIN
  15. EZETIMIBE [Concomitant]
     Active Substance: EZETIMIBE
  16. ASPIRIN [Concomitant]
     Active Substance: ASPIRIN

REACTIONS (2)
  - Anaemia [Recovered/Resolved]
  - Ileus paralytic [Recovered/Resolved]

NARRATIVE: CASE EVENT DATE: 20250208
